FAERS Safety Report 18162310 (Version 1)
Quarter: 2020Q3

REPORT INFORMATION
  Report Type: Spontaneous
  Country: CA (occurrence: CA)
  Receive Date: 20200818
  Receipt Date: 20200818
  Transmission Date: 20201103
  Serious: Yes (Other)
  Sender: FDA-Public Use
  Company Number: CA-ACCORD-195574

PATIENT
  Sex: Female

DRUGS (2)
  1. IBRANCE [Concomitant]
     Active Substance: PALBOCICLIB
     Route: 065
  2. CAPECITABINE. [Suspect]
     Active Substance: CAPECITABINE
     Indication: PRODUCT USED FOR UNKNOWN INDICATION
     Route: 048

REACTIONS (1)
  - Malignant neoplasm progression [Unknown]
